FAERS Safety Report 26082696 (Version 1)
Quarter: 2025Q4

REPORT INFORMATION
  Report Type: Spontaneous
  Country: US (occurrence: None)
  Receive Date: 20251123
  Receipt Date: 20251123
  Transmission Date: 20260118
  Serious: Yes (Other)
  Sender: FDA-CTU
  Company Number: None

PATIENT
  Age: 55 Year
  Sex: Male
  Weight: 72 kg

DRUGS (9)
  1. DUPIXENT [Suspect]
     Active Substance: DUPILUMAB
     Indication: Eczema
     Dates: start: 20171205, end: 20180410
  2. ELIQUIS [Concomitant]
     Active Substance: APIXABAN
  3. METHOTREXATE [Concomitant]
     Active Substance: METHOTREXATE
  4. OPZELURA [Concomitant]
     Active Substance: RUXOLITINIB PHOSPHATE
  5. BEXAROTENE [Concomitant]
     Active Substance: BEXAROTENE
  6. ATROVENT [Concomitant]
     Active Substance: IPRATROPIUM BROMIDE
  7. ALAVERT ALLERGY [Concomitant]
     Active Substance: LORATADINE
  8. FLONASE [Concomitant]
     Active Substance: FLUTICASONE PROPIONATE
  9. NASALCROM [Concomitant]
     Active Substance: CROMOLYN SODIUM

REACTIONS (3)
  - Cutaneous T-cell lymphoma [None]
  - Cutaneous T-cell lymphoma [None]
  - Eczema [None]

NARRATIVE: CASE EVENT DATE: 20180410
